FAERS Safety Report 6357637-2 (Version None)
Quarter: 2009Q3

REPORT INFORMATION
  Report Type: 
  Country: None (occurrence: None)
  Receive Date: 20090916
  Receipt Date: 20090707
  Transmission Date: 20100115
  Serious: No
  Sender: FDA-Public Use
  Company Number: US-AMGEN-US353397

PATIENT
  Sex: Female

DRUGS (4)
  1. NPLATE [Suspect]
     Indication: IDIOPATHIC THROMBOCYTOPENIC PURPURA
     Dates: start: 20081118
  2. PREDNISONE [Concomitant]
     Route: 065
  3. ACTONEL [Concomitant]
  4. COUMADIN [Concomitant]

REACTIONS (4)
  - ALOPECIA [None]
  - CONTUSION [None]
  - SKIN DISCOLOURATION [None]
  - WEIGHT DECREASED [None]
